FAERS Safety Report 13913394 (Version 1)
Quarter: 2017Q3

REPORT INFORMATION
  Report Type: Spontaneous
  Country: US (occurrence: US)
  Receive Date: 20170828
  Receipt Date: 20170828
  Transmission Date: 20171127
  Serious: No
  Sender: FDA-Public Use
  Company Number: US-ROCHE-1132781

PATIENT
  Sex: Male
  Weight: 29.4 kg

DRUGS (4)
  1. SYNTHROID [Concomitant]
     Active Substance: LEVOTHYROXINE SODIUM
     Route: 048
  2. HYDROCORTISON [Concomitant]
     Active Substance: HYDROCORTISONE
     Indication: STRESS
     Route: 065
  3. NUTROPIN [Suspect]
     Active Substance: SOMATROPIN
     Indication: ENDOCRINE DISORDER
     Dosage: IN 2 CC DILUENT
     Route: 058
  4. HYDROCORTISON [Concomitant]
     Active Substance: HYDROCORTISONE
     Indication: MALAISE

REACTIONS (1)
  - Headache [Unknown]
